FAERS Safety Report 9553367 (Version 1)
Quarter: 2013Q3

REPORT INFORMATION
  Report Type: Spontaneous
  Country: US (occurrence: US)
  Receive Date: 20130925
  Receipt Date: 20130925
  Transmission Date: 20140515
  Serious: No
  Sender: FDA-Public Use
  Company Number: US-ABBVIE-12P-163-0986827-00

PATIENT
  Sex: Female

DRUGS (3)
  1. VICODIN HP [Suspect]
     Indication: ANALGESIC THERAPY
     Dates: start: 1991
  2. ATENOLOL [Concomitant]
     Indication: SUPRAVENTRICULAR TACHYCARDIA
  3. NEXIUM [Concomitant]
     Indication: GASTROOESOPHAGEAL REFLUX DISEASE

REACTIONS (1)
  - Headache [Not Recovered/Not Resolved]
